FAERS Safety Report 5782176-7 (Version None)
Quarter: 2008Q2

REPORT INFORMATION
  Report Type: 
  Country: None (occurrence: None)
  Receive Date: 20080623
  Receipt Date: 20080611
  Transmission Date: 20081010
  Serious: Yes (Hospitalization, Other)
  Sender: FDA-Public Use
  Company Number: DE-WYE-H02617908

PATIENT
  Sex: Male

DRUGS (4)
  1. CORDAREX [Suspect]
     Indication: ATRIAL FIBRILLATION
     Route: 048
     Dates: start: 20040701, end: 20071030
  2. RAMIPRIL [Concomitant]
     Dosage: UNKNOWN
     Route: 048
  3. MARCUMAR [Concomitant]
     Dosage: UNKNOWN
     Route: 048
     Dates: start: 20040101
  4. TAMSULOSIN HCL [Concomitant]
     Dosage: UNKNOWN
     Route: 048

REACTIONS (3)
  - BLOOD THYROID STIMULATING HORMONE DECREASED [None]
  - INTERSTITIAL LUNG DISEASE [None]
  - LIVIDITY [None]
